FAERS Safety Report 9881849 (Version 1)
Quarter: 2014Q1

REPORT INFORMATION
  Report Type: Spontaneous
  Country: NO (occurrence: NO)
  Receive Date: 20140207
  Receipt Date: 20140207
  Transmission Date: 20141002
  Serious: Yes (Hospitalization, Other)
  Sender: FDA-Public Use
  Company Number: NO-PFIZER INC-2014033982

PATIENT
  Age: 83 Year
  Sex: Female

DRUGS (10)
  1. ZOLOFT [Suspect]
     Indication: DEPRESSIVE SYMPTOM
     Dosage: UNK
     Route: 048
     Dates: start: 201310, end: 201401
  2. FOSAMAX [Concomitant]
     Dosage: 70MG WEEKLY
     Route: 048
  3. STILNOCT [Concomitant]
     Dosage: 10MG ONCE DAILY
     Route: 048
  4. PROGYNOVA [Concomitant]
     Dosage: 1MG ONCE DAILY
     Route: 048
  5. VISCOTEARS [Concomitant]
     Dosage: 1-2 GTT O.U. B.I.D.
     Route: 047
  6. VESICARE [Concomitant]
     Dosage: 5MG ONCE DAILY
     Route: 048
  7. FURIX [Concomitant]
     Dosage: UNK
     Route: 048
  8. LOCOID [Concomitant]
     Dosage: 1 DF DAILY WHEN NEEDED
     Route: 061
  9. CALCIGRAN FORTE [Concomitant]
     Dosage: 1000 MG/800 IE, UNK
     Route: 048
  10. PARACET [Concomitant]
     Dosage: 500MG UP TO 3 TIMES A DAY WHEN NEEDED
     Route: 048

REACTIONS (2)
  - Diarrhoea [Unknown]
  - Hypokalaemia [Unknown]
